FAERS Safety Report 23182704 (Version 3)
Quarter: 2023Q4

REPORT INFORMATION
  Report Type: Spontaneous
  Country: IN (occurrence: IN)
  Receive Date: 20231114
  Receipt Date: 20231204
  Transmission Date: 20240109
  Serious: Yes (Other)
  Sender: FDA-Public Use
  Company Number: IN-PFIZER INC-PV202300060132

PATIENT
  Age: 57 Year
  Sex: Female

DRUGS (8)
  1. DACOMITINIB [Suspect]
     Active Substance: DACOMITINIB
     Dosage: 30 MG, 1X/DAY
     Route: 048
     Dates: start: 20230119
  2. HYDROCORTISONE [Concomitant]
     Active Substance: HYDROCORTISONE
     Indication: Rash
     Dosage: UNK
  3. DOXYCYCLINE [Concomitant]
     Active Substance: DOXYCYCLINE
     Indication: Rash
     Dosage: UNK, 1X/DAY
  4. LOPERAMIDE HYDROCHLORIDE [Concomitant]
     Active Substance: LOPERAMIDE HYDROCHLORIDE
     Indication: Diarrhoea
     Dosage: 1 DF, AS NEEDED
  5. RANITIDINE HYDROCHLORIDE [Concomitant]
     Active Substance: RANITIDINE HYDROCHLORIDE
     Dosage: UNK (BDAC [IF REQUIRED])
  6. PREGAB [Concomitant]
     Dosage: UNK, 1X/DAY (AT BEDTIME)
  7. LEVOTHYROXINE [Concomitant]
     Active Substance: LEVOTHYROXINE
     Dosage: 50 UG, DAILY (BBF)
  8. MUCORAL [Concomitant]
     Dosage: UNK, 3X/DAY
     Route: 048

REACTIONS (9)
  - Cholecystectomy [Unknown]
  - Neoplasm progression [Unknown]
  - Body mass index increased [Unknown]
  - Back pain [Unknown]
  - Cough [Unknown]
  - Paronychia [Unknown]
  - Alanine aminotransferase increased [Unknown]
  - Aspartate aminotransferase increased [Unknown]
  - Blood bilirubin unconjugated decreased [Unknown]

NARRATIVE: CASE EVENT DATE: 20230214
